FAERS Safety Report 18369167 (Version 7)
Quarter: 2024Q3

REPORT INFORMATION
  Report Type: Spontaneous
  Country: JP (occurrence: JP)
  Receive Date: 20201011
  Receipt Date: 20240712
  Transmission Date: 20241017
  Serious: Yes (Hospitalization, Disabling, Other)
  Sender: SANOFI AVENTIS
  Company Number: JP-SA-2020SA278089

PATIENT
  Age: 43 Year
  Sex: Female
  Weight: 53 kg

DRUGS (8)
  1. DUPIXENT [Suspect]
     Active Substance: DUPILUMAB
     Indication: Chronic eosinophilic rhinosinusitis
     Dosage: 300 MG, QOW
     Route: 058
     Dates: start: 20200720, end: 20200928
  2. MONTELUKAST [Suspect]
     Active Substance: MONTELUKAST SODIUM
     Indication: Asthma
     Dosage: 10 MG, QD
     Route: 048
     Dates: start: 20191015, end: 20201004
  3. MOMETASONE [Concomitant]
     Active Substance: MOMETASONE
     Indication: Chronic eosinophilic rhinosinusitis
     Dosage: UNK, QD (2 SPRAYING)
     Route: 045
     Dates: start: 20191015
  4. FLUTICASONE PROPIONATE\FORMOTEROL FUMARATE [Concomitant]
     Active Substance: FLUTICASONE PROPIONATE\FORMOTEROL FUMARATE
     Indication: Asthma
     Dosage: 4 UNK, BID ( INHALATIONS/DOSE)
     Route: 055
     Dates: start: 20191015
  5. BILASTINE [Concomitant]
     Active Substance: BILASTINE
     Indication: Asthma
     Dosage: 20 MG, QD
  6. BILASTINE [Concomitant]
     Active Substance: BILASTINE
     Indication: Rhinitis allergic
  7. EPRAZINONE [Concomitant]
     Active Substance: EPRAZINONE
     Indication: Asthma
     Dosage: 60 G, TID
  8. HERBALS [Concomitant]
     Active Substance: HERBALS
     Indication: Asthma
     Dosage: 7.5 G, TID
     Route: 048

REACTIONS (11)
  - Eosinophilic granulomatosis with polyangiitis [Recovering/Resolving]
  - Arthralgia [Recovering/Resolving]
  - Polyneuropathy [Recovering/Resolving]
  - Hypoaesthesia [Recovering/Resolving]
  - Pain in extremity [Recovering/Resolving]
  - Purpura [Recovering/Resolving]
  - Erythema [Recovering/Resolving]
  - Pyrexia [Recovering/Resolving]
  - Necrosis [Recovering/Resolving]
  - Cutaneous vasculitis [Recovering/Resolving]
  - Off label use [Unknown]

NARRATIVE: CASE EVENT DATE: 20200101
